FAERS Safety Report 19886454 (Version 1)
Quarter: 2021Q3

REPORT INFORMATION
  Report Type: Spontaneous
  Country: US (occurrence: US)
  Receive Date: 20210927
  Receipt Date: 20210927
  Transmission Date: 20211014
  Serious: Yes (Hospitalization)
  Sender: FDA-Public Use
  Company Number: US-AMNEAL PHARMACEUTICALS-2021-AMRX-03870

PATIENT
  Sex: Male
  Weight: 7.21 kg

DRUGS (1)
  1. VIGABATRIN. [Suspect]
     Active Substance: VIGABATRIN
     Indication: SEIZURE
     Dosage: 550 MILLIGRAM, 2 /DAY
     Route: 065

REACTIONS (2)
  - Adverse event [Unknown]
  - Therapy cessation [Unknown]
